FAERS Safety Report 5915361-1 (Version None)
Quarter: 2008Q3

REPORT INFORMATION
  Report Type: 
  Country: None (occurrence: None)
  Receive Date: 20080909
  Receipt Date: 20071218
  Transmission Date: 20090109
  Serious: Yes (Hospitalization, Disabling)
  Sender: FDA-Public Use
  Company Number: 163-20785-07121050

PATIENT
  Sex: Male

DRUGS (4)
  1. THALOMID [Suspect]
     Indication: MULTIPLE MYELOMA
     Dosage: 400-100MG, DAILY, ORAL ; 200-400MG, DAILY, ORAL ; 400-100MG, DAILY, ORAL ; 50 MG, 1 IN 1 D, ORAL
     Route: 048
     Dates: start: 20011119, end: 20020301
  2. THALOMID [Suspect]
     Indication: MULTIPLE MYELOMA
     Dosage: 400-100MG, DAILY, ORAL ; 200-400MG, DAILY, ORAL ; 400-100MG, DAILY, ORAL ; 50 MG, 1 IN 1 D, ORAL
     Route: 048
     Dates: start: 20020315, end: 20020701
  3. THALOMID [Suspect]
     Indication: MULTIPLE MYELOMA
     Dosage: 400-100MG, DAILY, ORAL ; 200-400MG, DAILY, ORAL ; 400-100MG, DAILY, ORAL ; 50 MG, 1 IN 1 D, ORAL
     Route: 048
     Dates: start: 20030610, end: 20030701
  4. THALOMID [Suspect]
     Indication: MULTIPLE MYELOMA
     Dosage: 400-100MG, DAILY, ORAL ; 200-400MG, DAILY, ORAL ; 400-100MG, DAILY, ORAL ; 50 MG, 1 IN 1 D, ORAL
     Route: 048
     Dates: start: 20041229

REACTIONS (1)
  - NEUROPATHY PERIPHERAL [None]
